FAERS Safety Report 13343672 (Version 3)
Quarter: 2017Q2

REPORT INFORMATION
  Report Type: Spontaneous
  Country: DE (occurrence: DE)
  Receive Date: 20170316
  Receipt Date: 20170525
  Transmission Date: 20170830
  Serious: Yes (Hospitalization, Other)
  Sender: FDA-Public Use
  Company Number: DE-B.I. PHARMACEUTICALS,INC./RIDGEFIELD-2016-BI-53702DE

PATIENT
  Age: 69 Year
  Sex: Male

DRUGS (1)
  1. PRADAXA [Suspect]
     Active Substance: DABIGATRAN ETEXILATE MESYLATE
     Indication: ATRIAL FIBRILLATION
     Route: 065
     Dates: end: 20160805

REACTIONS (8)
  - Headache [Recovered/Resolved]
  - Head injury [Unknown]
  - Fall [Unknown]
  - Apathy [Unknown]
  - Subdural haemorrhage [Recovered/Resolved]
  - Personality change [Recovered/Resolved]
  - Neck pain [Unknown]
  - Psychomotor retardation [Unknown]
